FAERS Safety Report 4269748-6 (Version None)
Quarter: 2004Q1

REPORT INFORMATION
  Report Type: 
  Country: None (occurrence: None)
  Receive Date: 20040105
  Receipt Date: 20020926
  Transmission Date: 20041129
  Serious: Yes (Other)
  Sender: FDA-Public Use
  Company Number: 200110072BBE

PATIENT
  Age: 14 Year
  Sex: Male

DRUGS (3)
  1. HELIXATE [Suspect]
     Indication: FACTOR VIII DEFICIENCY
     Dosage: INTRAVENOUS
     Route: 042
     Dates: start: 20010102
  2. HELIXATE [Suspect]
     Indication: FACTOR VIII DEFICIENCY
     Dosage: INTRAVENOUS
     Route: 042
     Dates: start: 20010102
  3. HELIXATE [Suspect]
     Dosage: INTRAVENOUS
     Route: 042
     Dates: start: 20010102

REACTIONS (1)
  - ANAPHYLACTIC REACTION [None]
